FAERS Safety Report 21504578 (Version 2)
Quarter: 2022Q4

REPORT INFORMATION
  Report Type: Spontaneous
  Country: US (occurrence: US)
  Receive Date: 20221025
  Receipt Date: 20221123
  Transmission Date: 20230113
  Serious: Yes (Other)
  Sender: FDA-Public Use
  Company Number: US-PFIZER INC-PV202200087362

PATIENT
  Age: 42 Year
  Sex: Male

DRUGS (2)
  1. ZIRABEV [Suspect]
     Active Substance: BEVACIZUMAB-BVZR
     Dosage: 15 MG/KG
     Dates: start: 202110, end: 202205
  2. ZIRABEV [Suspect]
     Active Substance: BEVACIZUMAB-BVZR
     Dosage: 7.5 MG/KG
     Dates: start: 2022

REACTIONS (2)
  - Off label use [Unknown]
  - Metastases to lung [Unknown]

NARRATIVE: CASE EVENT DATE: 20220101
